FAERS Safety Report 7992592-0 (Version None)
Quarter: 2011Q4

REPORT INFORMATION
  Report Type: 
  Country: None (occurrence: None)
  Receive Date: 20111219
  Receipt Date: 20111207
  Transmission Date: 20120403
  Serious: Yes (Other)
  Sender: FDA-Public Use
  Company Number: AU-PFIZER INC-2011300084

PATIENT
  Age: 75 Year
  Sex: Male

DRUGS (1)
  1. RAMIPRIL [Suspect]

REACTIONS (1)
  - TUBULOINTERSTITIAL NEPHRITIS [None]
